FAERS Safety Report 11320302 (Version 1)
Quarter: 2015Q3

REPORT INFORMATION
  Report Type: Spontaneous
  Country: RU (occurrence: RU)
  Receive Date: 20150729
  Receipt Date: 20150729
  Transmission Date: 20151125
  Serious: Yes (Life-Threatening)
  Sender: FDA-Public Use
  Company Number: RU-TEVA-581487ISR

PATIENT
  Age: 54 Year
  Sex: Female

DRUGS (1)
  1. CARBOPLATIN-TEVA 450 MG [Suspect]
     Active Substance: CARBOPLATIN
     Route: 042

REACTIONS (2)
  - Dyspnoea [Recovering/Resolving]
  - Pyrexia [Recovering/Resolving]
